FAERS Safety Report 15826272 (Version 1)
Quarter: 2018Q4

REPORT INFORMATION
  Report Type: Spontaneous
  Country: US (occurrence: US)
  Receive Date: 20181218
  Receipt Date: 20181218
  Transmission Date: 20190205
  Serious: Yes (Hospitalization)
  Sender: FDA-Public Use
  Company Number: None

PATIENT
  Age: 63 Year
  Sex: Male
  Weight: 60.3 kg

DRUGS (1)
  1. CISPLATIN. [Suspect]
     Active Substance: CISPLATIN
     Dates: end: 20181114

REACTIONS (10)
  - Asthenia [None]
  - Dysphagia [None]
  - Sputum culture positive [None]
  - Lung consolidation [None]
  - Empyema [None]
  - Sinus tachycardia [None]
  - Pneumonia [None]
  - Pleural effusion [None]
  - Lethargy [None]
  - Staphylococcus test positive [None]

NARRATIVE: CASE EVENT DATE: 20181112
